FAERS Safety Report 4279557-X (Version None)
Quarter: 2004Q1

REPORT INFORMATION
  Report Type: 
  Country: None (occurrence: None)
  Receive Date: 20040126
  Receipt Date: 20040126
  Transmission Date: 20041129
  Serious: Yes (Other)
  Sender: FDA-Public Use
  Company Number: None

PATIENT
  Age: 57 Year
  Sex: Female
  Weight: 78.0187 kg

DRUGS (1)
  1. XIGRIS [Suspect]
     Indication: SEPSIS
     Dosage: 24 MCG/KG/HR CONTINUOUS
     Dates: start: 20040119, end: 20040121

REACTIONS (3)
  - EYE HAEMORRHAGE [None]
  - LIP HAEMORRHAGE [None]
  - MOUTH HAEMORRHAGE [None]
